FAERS Safety Report 10301105 (Version 1)
Quarter: 2014Q3

REPORT INFORMATION
  Report Type: Spontaneous
  Country: US (occurrence: None)
  Receive Date: 20140709
  Receipt Date: 20140709
  Transmission Date: 20150326
  Serious: Yes (Other)
  Sender: FDA-Public Use
  Company Number: None

PATIENT
  Age: 66 Year
  Sex: Male
  Weight: 104.33 kg

DRUGS (11)
  1. CITALOPRAM [Concomitant]
     Active Substance: CITALOPRAM HYDROBROMIDE
  2. INVOKANA [Suspect]
     Active Substance: CANAGLIFLOZIN
     Indication: DIABETES MELLITUS
     Dosage: 300 MG, 1 PILL, ONCE, MOUTH
     Route: 048
     Dates: start: 20131003, end: 20140623
  3. TAMSULOSIN [Concomitant]
     Active Substance: TAMSULOSIN
  4. ASPRIN [Concomitant]
     Active Substance: ASPIRIN
  5. HYDRALAZINE [Concomitant]
     Active Substance: HYDRALAZINE HYDROCHLORIDE
  6. INSULLIAN [Concomitant]
  7. METFORMIN [Concomitant]
     Active Substance: METFORMIN HYDROCHLORIDE
  8. FUROSEMIDE. [Concomitant]
     Active Substance: FUROSEMIDE
  9. LOSARTAN [Concomitant]
     Active Substance: LOSARTAN
  10. B12 TABLETS [Concomitant]
  11. CINNAMON. [Concomitant]
     Active Substance: CINNAMON

REACTIONS (7)
  - Polydipsia [None]
  - Nausea [None]
  - Back pain [None]
  - Abdominal discomfort [None]
  - Constipation [None]
  - Dysuria [None]
  - Nocturia [None]

NARRATIVE: CASE EVENT DATE: 20130601
